FAERS Safety Report 7197317-7 (Version None)
Quarter: 2010Q4

REPORT INFORMATION
  Report Type: 
  Country: None (occurrence: None)
  Receive Date: 20101206
  Receipt Date: 20101117
  Transmission Date: 20110411
  Serious: Yes (Hospitalization, Other)
  Sender: FDA-Public Use
  Company Number: BAYER CASE ID: 201015862BYL

PATIENT
  Age: 55 Year
  Sex: Female

DRUGS (1)
  1. GLUCOBAY [Suspect]
     Indication: DIABETES MELLITUS
     Dosage: ORAL
     Route: 048
     Dates: start: 20081001

REACTIONS (4)
  - DECREASED APPETITE [None]
  - ILEUS [None]
  - INFLAMMATORY PSEUDOTUMOUR [None]
  - WEIGHT DECREASED [None]
